FAERS Safety Report 14240128 (Version 2)
Quarter: 2018Q1

REPORT INFORMATION
  Report Type: Spontaneous
  Country: US (occurrence: US)
  Receive Date: 20171130
  Receipt Date: 20180110
  Transmission Date: 20180508
  Serious: No
  Sender: FDA-Public Use
  Company Number: US-PFIZER INC-2017512384

PATIENT
  Age: 63 Year
  Sex: Female
  Weight: 64.41 kg

DRUGS (2)
  1. LATANOPROST. [Suspect]
     Active Substance: LATANOPROST
     Indication: NORMAL TENSION GLAUCOMA
     Dosage: 2 GTT, DAILY(1 DROP IN BOTH EYES EVERY DAY AT BEDTIME)
     Dates: start: 20171021
  2. NASOCORT [Concomitant]
     Active Substance: BUDESONIDE
     Indication: OBSTRUCTIVE AIRWAYS DISORDER
     Dosage: 2 SPRAYS IN EACH NOSTRIL AS NEEDED BASIS AT BEDTIME

REACTIONS (3)
  - Product quality issue [Unknown]
  - Increased upper airway secretion [Unknown]
  - Incorrect dose administered [Not Recovered/Not Resolved]

NARRATIVE: CASE EVENT DATE: 20171021
